FAERS Safety Report 7590222-3 (Version None)
Quarter: 2011Q3

REPORT INFORMATION
  Report Type: 
  Country: None (occurrence: None)
  Receive Date: 20110705
  Receipt Date: 20110623
  Transmission Date: 20111222
  Serious: Yes (Hospitalization)
  Sender: FDA-Public Use
  Company Number: US-ACTELION-A-NJ2011-44419

PATIENT

DRUGS (2)
  1. TRACLEER [Suspect]
     Indication: PULMONARY ARTERIAL HYPERTENSION
     Dosage: UNK
     Route: 048
     Dates: start: 20100113
  2. COUMADIN [Concomitant]

REACTIONS (4)
  - DYSURIA [None]
  - ASTHENIA [None]
  - CONFUSIONAL STATE [None]
  - URINARY TRACT INFECTION [None]
